FAERS Safety Report 9378682 (Version 1)
Quarter: 2013Q3

REPORT INFORMATION
  Report Type: Spontaneous
  Country: FR (occurrence: FR)
  Receive Date: 20130702
  Receipt Date: 20130702
  Transmission Date: 20140515
  Serious: Yes (Hospitalization)
  Sender: FDA-Public Use
  Company Number: FR-ASTRAZENECA-2013SE48579

PATIENT
  Age: 20613 Day
  Sex: Female

DRUGS (8)
  1. INEXIUM [Suspect]
     Indication: GASTRODUODENAL ULCER
     Route: 048
     Dates: start: 20121204, end: 20130116
  2. CELLCEPT [Suspect]
     Indication: IMMUNOSUPPRESSION
     Route: 048
     Dates: start: 20121029, end: 20130129
  3. PROGRAF [Suspect]
     Indication: IMMUNOSUPPRESSION
     Route: 048
     Dates: start: 20121029, end: 20130206
  4. CORTANCYL [Suspect]
     Indication: IMMUNOSUPPRESSION
     Route: 048
     Dates: start: 20121029
  5. TENORMIN [Concomitant]
     Route: 048
  6. AMLOR [Concomitant]
  7. HYPERIUM [Concomitant]
  8. NOVOMIX [Concomitant]

REACTIONS (4)
  - Delirium [Recovered/Resolved]
  - Encephalitis [Unknown]
  - Confusional state [Recovered/Resolved]
  - Hallucination [Recovered/Resolved]
